FAERS Safety Report 15591528 (Version 1)
Quarter: 2018Q4

REPORT INFORMATION
  Report Type: Spontaneous
  Country: US (occurrence: US)
  Receive Date: 20181107
  Receipt Date: 20181107
  Transmission Date: 20190205
  Serious: Yes (Other)
  Sender: FDA-Public Use
  Company Number: US-AMGEN-USASP2018154325

PATIENT
  Sex: Male

DRUGS (27)
  1. HUMIRA [Concomitant]
     Active Substance: ADALIMUMAB
     Indication: RHEUMATOID ARTHRITIS
  2. PANTOPRAZOLE [Concomitant]
     Active Substance: PANTOPRAZOLE
     Dosage: UNK
  3. ZOHYDRO [Concomitant]
     Active Substance: HYDROCODONE BITARTRATE
     Dosage: UNK
  4. VITAMIN D [Concomitant]
     Active Substance: CHOLECALCIFEROL
     Dosage: UNK
  5. MAGNESIUM [Concomitant]
     Active Substance: MAGNESIUM
     Dosage: UNK
  6. DOCUSATE [Concomitant]
     Active Substance: DOCUSATE
     Dosage: UNK
  7. METFORMIN [Concomitant]
     Active Substance: METFORMIN HYDROCHLORIDE
     Dosage: UNK
  8. REMICADE [Concomitant]
     Active Substance: INFLIXIMAB
     Indication: OSTEOARTHRITIS
  9. XARELTO [Concomitant]
     Active Substance: RIVAROXABAN
     Dosage: UNK
  10. SULFASALAZINE. [Concomitant]
     Active Substance: SULFASALAZINE
     Dosage: UNK
  11. GABAPENTIN. [Concomitant]
     Active Substance: GABAPENTIN
     Dosage: UNK
  12. HUMIRA [Concomitant]
     Active Substance: ADALIMUMAB
     Indication: ANKYLOSING SPONDYLITIS
     Dosage: UNK
  13. RANITIDINE. [Concomitant]
     Active Substance: RANITIDINE
     Dosage: UNK
  14. RANEXA [Concomitant]
     Active Substance: RANOLAZINE
     Dosage: UNK
  15. LOSARTAN. [Concomitant]
     Active Substance: LOSARTAN
     Dosage: UNK
  16. IRON [Concomitant]
     Active Substance: IRON
     Dosage: UNK
  17. ENBREL [Suspect]
     Active Substance: ETANERCEPT
     Indication: RHEUMATOID ARTHRITIS
     Dosage: 50 MG, QWK
     Route: 065
  18. REMICADE [Concomitant]
     Active Substance: INFLIXIMAB
     Indication: RHEUMATOID ARTHRITIS
  19. ONDANSETRON [Concomitant]
     Active Substance: ONDANSETRON
     Dosage: UNK
  20. REMICADE [Concomitant]
     Active Substance: INFLIXIMAB
     Indication: ANKYLOSING SPONDYLITIS
     Dosage: UNK
  21. METOPROLOL. [Concomitant]
     Active Substance: METOPROLOL
     Dosage: UNK
  22. ENBREL [Suspect]
     Active Substance: ETANERCEPT
     Indication: ANKYLOSING SPONDYLITIS
     Dosage: 50 MG, QWK
     Route: 065
  23. HUMIRA [Concomitant]
     Active Substance: ADALIMUMAB
     Indication: OSTEOARTHRITIS
  24. ATORVASTATIN [Concomitant]
     Active Substance: ATORVASTATIN
     Dosage: UNK
  25. VITAMIN B [Concomitant]
     Active Substance: VITAMIN B
     Dosage: UNK
  26. VITAMIN B12 [Concomitant]
     Active Substance: CYANOCOBALAMIN
     Dosage: UNK
  27. ENBREL [Suspect]
     Active Substance: ETANERCEPT
     Indication: OSTEOARTHRITIS

REACTIONS (2)
  - Injection site pain [Unknown]
  - Atrial fibrillation [Unknown]

NARRATIVE: CASE EVENT DATE: 2016
